FAERS Safety Report 9642474 (Version 1)
Quarter: 2013Q4

REPORT INFORMATION
  Report Type: Spontaneous
  Country: CO (occurrence: CO)
  Receive Date: 20131024
  Receipt Date: 20131024
  Transmission Date: 20140711
  Serious: Yes (Other)
  Sender: FDA-Public Use
  Company Number: CO-AMGEN-COLSP2013075101

PATIENT
  Age: 50 Year
  Sex: Male

DRUGS (4)
  1. ENBREL [Suspect]
     Indication: RHEUMATOID ARTHRITIS
     Dosage: 50 MG, WEEKLY
     Route: 058
     Dates: end: 201309
  2. METHOTREXATE [Concomitant]
     Indication: RHEUMATOID ARTHRITIS
     Dosage: UNK MG, 6 TABLETS WEEKLY
     Route: 048
     Dates: start: 2003
  3. FOLIC ACID [Concomitant]
     Indication: RHEUMATOID ARTHRITIS
     Dosage: UNK MG, 1X/DAY
     Route: 048
     Dates: start: 2003
  4. CALTRATE                           /07357001/ [Concomitant]
     Indication: RHEUMATOID ARTHRITIS
     Dosage: UNK MG, 1X/DAY
     Route: 048
     Dates: start: 2003

REACTIONS (2)
  - Deafness [Unknown]
  - Rash [Unknown]
